FAERS Safety Report 7709221-3 (Version None)
Quarter: 2011Q3

REPORT INFORMATION
  Report Type: 
  Country: None (occurrence: None)
  Receive Date: 20110819
  Receipt Date: 20110808
  Transmission Date: 20111222
  Serious: Yes (Congenital Anomaly)
  Sender: FDA-Public Use
  Company Number: WAES 1108USA01096B1

PATIENT
  Sex: Male

DRUGS (5)
  1. LOPINAVIR AND RITONAVIR [Suspect]
     Dosage: 4 TAB/DAILY/TRANSPLACENTAL
     Route: 064
     Dates: start: 20110505
  2. COMBIVIR [Suspect]
     Dosage: 2
     Dates: start: 20110505
  3. ISENTRESS [Suspect]
     Dosage: 800
     Dates: start: 20110606
  4. RETROVIR [Suspect]
     Dosage: 2 MG/DAILY/IV, 1 MG/DAILY/TRANSPLACENTAL
     Route: 042
     Dates: start: 20110704, end: 20110706
  5. RETROVIR [Suspect]
     Dosage: 2 MG/DAILY/IV, 1 MG/DAILY/TRANSPLACENTAL
     Route: 042
     Dates: start: 20110704, end: 20110704

REACTIONS (2)
  - MATERNAL DRUGS AFFECTING FOETUS [None]
  - HYPOSPADIAS [None]
